FAERS Safety Report 8710748 (Version 3)
Quarter: 2012Q4

REPORT INFORMATION
  Report Type: 
  Country: US (occurrence: US)
  Receive Date: 20120807
  Receipt Date: 20121009
  Transmission Date: 20130627
  Serious: No
  Sender: FDA-Public Use
  Company Number: US-PFIZER INC-2012055584

PATIENT
  Sex: Female

DRUGS (1)
  1. LYRICA [Suspect]
     Dosage: 50 mg, 3x/day

REACTIONS (3)
  - Drug dispensing error [Unknown]
  - Oedema peripheral [Unknown]
  - Hypersensitivity [Unknown]
